FAERS Safety Report 6128830-9 (Version None)
Quarter: 2009Q1

REPORT INFORMATION
  Report Type: 
  Country: None (occurrence: None)
  Receive Date: 20090320
  Receipt Date: 20090302
  Transmission Date: 20090719
  Serious: Yes (Life-Threatening, Hospitalization, Disabling, Other)
  Sender: FDA-Public Use
  Company Number: AVE_00262_2009

PATIENT
  Sex: Female
  Weight: 285 kg

DRUGS (3)
  1. NICOTINE [Suspect]
     Indication: SMOKING CESSATION THERAPY
     Dosage: 21 MG QD TRANSDERMAL
     Route: 062
     Dates: start: 20081219, end: 20081223
  2. ALBUTEROL [Concomitant]
  3. ANTIHYPERTENSIVES [Concomitant]

REACTIONS (5)
  - APPLICATION SITE ERYTHEMA [None]
  - APPLICATION SITE PRURITUS [None]
  - DRUG INEFFECTIVE [None]
  - SCAR [None]
  - TREATMENT NONCOMPLIANCE [None]
